FAERS Safety Report 6354548-3 (Version None)
Quarter: 2009Q3

REPORT INFORMATION
  Report Type: 
  Country: None (occurrence: None)
  Receive Date: 20090909
  Receipt Date: 20090901
  Transmission Date: 20100115
  Serious: Yes (Death)
  Sender: FDA-Public Use
  Company Number: 1000008628

PATIENT

DRUGS (1)
  1. DINOPROSTONE (DINOPROSTONE) [Suspect]
     Dosage: TRANSPLACENTAL
     Route: 064

REACTIONS (5)
  - APGAR SCORE LOW [None]
  - CAESAREAN SECTION [None]
  - DEATH NEONATAL [None]
  - FOETAL HEART RATE DECREASED [None]
  - MATERNAL DRUGS AFFECTING FOETUS [None]
